FAERS Safety Report 8258567-1 (Version None)
Quarter: 2012Q2

REPORT INFORMATION
  Report Type: 
  Country: None (occurrence: None)
  Receive Date: 20120404
  Receipt Date: 20120330
  Transmission Date: 20120825
  Serious: Yes (Death, Other)
  Sender: FDA-Public Use
  Company Number: US-ASTELLAS-2012US002542

PATIENT
  Sex: Male
  Weight: 45 kg

DRUGS (7)
  1. MORPHINE [Concomitant]
     Indication: PRODUCT USED FOR UNKNOWN INDICATION
     Dosage: 30 MG, BID
     Route: 048
  2. ANTACIDS [Concomitant]
     Indication: GASTROOESOPHAGEAL REFLUX DISEASE
     Dosage: UNK
     Route: 065
  3. FENTANYL [Concomitant]
     Indication: PRODUCT USED FOR UNKNOWN INDICATION
     Dosage: 100 MG, Q3D
     Route: 062
  4. MULTI-VITAMIN [Concomitant]
     Indication: SUPPLEMENTATION THERAPY
     Dosage: UNK
     Route: 065
  5. REMERON [Concomitant]
     Indication: PRODUCT USED FOR UNKNOWN INDICATION
     Dosage: 30 MG, UID/QD
     Route: 048
  6. PREDNISONE TAB [Concomitant]
     Indication: PRODUCT USED FOR UNKNOWN INDICATION
     Dosage: 20 MG, UID/QD
     Route: 048
  7. PROGRAF [Suspect]
     Indication: LIVER TRANSPLANT
     Dosage: 4 MG, UID/QD
     Route: 048
     Dates: start: 20090423, end: 20120321

REACTIONS (5)
  - DEATH [None]
  - LUNG NEOPLASM MALIGNANT [None]
  - COMA [None]
  - HEPATITIS C [None]
  - HEPATIC FIBROSIS [None]
